FAERS Safety Report 9075130 (Version 1)
Quarter: 2013Q1

REPORT INFORMATION
  Report Type: Spontaneous
  Country: US (occurrence: US)
  Receive Date: 20130129
  Receipt Date: 20130129
  Transmission Date: 20140127
  Serious: No
  Sender: FDA-Public Use
  Company Number: US-ASTRAZENECA-2013SE03612

PATIENT
  Age: 82 Year
  Sex: Female
  Weight: 78.9 kg

DRUGS (10)
  1. TOPROL XL [Suspect]
     Indication: HEART RATE IRREGULAR
     Dosage: GENERIC
     Route: 048
  2. TOPROL XL [Suspect]
     Indication: BLOOD PRESSURE ABNORMAL
     Dosage: GENERIC
     Route: 048
  3. TOPROL XL [Suspect]
     Indication: HEART RATE IRREGULAR
     Route: 048
  4. TOPROL XL [Suspect]
     Indication: BLOOD PRESSURE ABNORMAL
     Route: 048
  5. TOPROL XL [Suspect]
     Indication: HEART RATE IRREGULAR
     Route: 048
  6. TOPROL XL [Suspect]
     Indication: BLOOD PRESSURE ABNORMAL
     Route: 048
  7. MULTIVITAMIN [Concomitant]
  8. FISH OIL SUPPLEMENT [Concomitant]
  9. TUMS [Concomitant]
  10. VITAMIN D TABLET [Concomitant]

REACTIONS (10)
  - Feeling abnormal [Unknown]
  - Thinking abnormal [Unknown]
  - Kidney infection [Unknown]
  - Adverse drug reaction [Unknown]
  - Malaise [Unknown]
  - Vertigo [Unknown]
  - Hallucination, visual [Unknown]
  - Headache [Unknown]
  - Weight increased [Unknown]
  - Dizziness [Unknown]
